FAERS Safety Report 10454096 (Version 2)
Quarter: 2014Q3

REPORT INFORMATION
  Report Type: Spontaneous
  Country: US (occurrence: US)
  Receive Date: 20140915
  Receipt Date: 20140915
  Transmission Date: 20150326
  Serious: No
  Sender: FDA-Public Use
  Company Number: US-BRISTOL-MYERS SQUIBB COMPANY-21030549

PATIENT
  Age: 78 Year
  Sex: Female
  Weight: 158.73 kg

DRUGS (9)
  1. LASIX [Concomitant]
     Active Substance: FUROSEMIDE
  2. CALTRATE WITH VITAMIN D [Concomitant]
     Active Substance: CALCIUM CARBONATE\VITAMIN D
  3. DIGOXIN. [Concomitant]
     Active Substance: DIGOXIN
  4. FISH OIL [Concomitant]
     Active Substance: FISH OIL
  5. FOLIC ACID. [Concomitant]
     Active Substance: FOLIC ACID
  6. ALBUTEROL. [Concomitant]
     Active Substance: ALBUTEROL
  7. ELIQUIS [Suspect]
     Active Substance: APIXABAN
     Indication: CEREBROVASCULAR ACCIDENT PROPHYLAXIS
     Route: 048
     Dates: start: 20140530, end: 20140606
  8. DILTIAZEM HCL [Concomitant]
     Active Substance: DILTIAZEM HYDROCHLORIDE
  9. MULTIVITAMIN [Concomitant]
     Active Substance: VITAMINS

REACTIONS (3)
  - Vaginal haemorrhage [Recovered/Resolved]
  - Gingival bleeding [Recovered/Resolved]
  - Haemorrhage urinary tract [Recovered/Resolved]

NARRATIVE: CASE EVENT DATE: 20140605
